FAERS Safety Report 19701242 (Version 1)
Quarter: 2021Q3

REPORT INFORMATION
  Report Type: Spontaneous
  Country: FR (occurrence: FR)
  Receive Date: 20210814
  Receipt Date: 20210814
  Transmission Date: 20211014
  Serious: Yes (Hospitalization)
  Sender: FDA-Public Use
  Company Number: NVSC2021FR180330

PATIENT
  Age: 82 Year
  Sex: Male
  Weight: 71 kg

DRUGS (3)
  1. FUROSEMIDE. [Suspect]
     Active Substance: FUROSEMIDE
     Indication: PRODUCT USED FOR UNKNOWN INDICATION
     Dosage: UNK(40MG/JR)
     Route: 048
     Dates: start: 20210614
  2. COLCHICINE. [Suspect]
     Active Substance: COLCHICINE
     Indication: GOUT
     Dosage: UNK(1G DU 9 AU 10/06 PUIS 0.5MG DU 18/06 AU 24/06)
     Route: 048
     Dates: start: 20210609, end: 20210624
  3. AMOXICILLINE [Suspect]
     Active Substance: AMOXICILLIN
     Indication: ARTHRITIS BACTERIAL
     Dosage: UNK(1G 4/JR DU 9 AU 10/06 PUIS 2G 4/JR)
     Route: 042
     Dates: start: 20210609

REACTIONS (2)
  - Hepatic cytolysis [Recovering/Resolving]
  - Gamma-glutamyltransferase increased [Recovering/Resolving]

NARRATIVE: CASE EVENT DATE: 20210618
